FAERS Safety Report 4367761-1 (Version None)
Quarter: 2004Q2

REPORT INFORMATION
  Report Type: 
  Country: None (occurrence: None)
  Receive Date: 20040601
  Receipt Date: 20040520
  Transmission Date: 20050107
  Serious: Yes (Other)
  Sender: FDA-Public Use
  Company Number: PHEH2004US05701

PATIENT
  Sex: Female

DRUGS (1)
  1. LOTREL [Suspect]
     Dates: end: 20040520

REACTIONS (3)
  - ANOREXIA [None]
  - GINGIVAL HYPERPLASIA [None]
  - WEIGHT DECREASED [None]
